FAERS Safety Report 4414019-8 (Version None)
Quarter: 2004Q3

REPORT INFORMATION
  Report Type: 
  Country: None (occurrence: None)
  Receive Date: 20040728
  Receipt Date: 20040726
  Transmission Date: 20050211
  Serious: Yes (Death)
  Sender: FDA-Public Use
  Company Number: TPG0T01243040

PATIENT
  Age: 81 Year
  Sex: Male

DRUGS (3)
  1. TRENANTONE       (LEUPRORELIN) (INJECTION) [Suspect]
     Indication: PROSTATE CANCER
     Dosage: 11.25 MG (11.25 MG, 1 IN 3 M)
     Route: 058
     Dates: start: 19961125, end: 19970204
  2. FLUTAMIDE [Concomitant]
  3. DIGITOXIN [Concomitant]

REACTIONS (5)
  - CARDIAC FAILURE [None]
  - CONDITION AGGRAVATED [None]
  - METASTASES TO BONE [None]
  - PROSTATE CANCER METASTATIC [None]
  - SHOCK [None]
